FAERS Safety Report 24283419 (Version 2)
Quarter: 2024Q3

REPORT INFORMATION
  Report Type: Spontaneous
  Country: CA (occurrence: CA)
  Receive Date: 20240904
  Receipt Date: 20240919
  Transmission Date: 20241017
  Serious: Yes (Hospitalization)
  Sender: ASCEND
  Company Number: CA-Ascend Therapeutics US, LLC-2161207

PATIENT
  Age: 56 Year
  Sex: Female

DRUGS (5)
  1. ESTROGEL [Suspect]
     Active Substance: ESTRADIOL
     Indication: Menopause
  2. ESTROGEL [Suspect]
     Active Substance: ESTRADIOL
  3. HERBALS\PLANTAGO INDICA WHOLE [Concomitant]
     Active Substance: HERBALS\PLANTAGO INDICA WHOLE
  4. PANTOPRAZOLE [Concomitant]
     Active Substance: PANTOPRAZOLE
  5. MEDROXYPROGESTERONE ACETATE [Suspect]
     Active Substance: MEDROXYPROGESTERONE ACETATE

REACTIONS (10)
  - Chest pain [Recovered/Resolved]
  - Weight increased [Recovered/Resolved]
  - Oedema peripheral [Recovered/Resolved]
  - Pulmonary embolism [Recovered/Resolved]
  - Thrombosis [Recovered/Resolved]
  - Tachypnoea [Recovered/Resolved]
  - Pulmonary artery dilatation [Recovered/Resolved]
  - Pleuritic pain [Recovered/Resolved]
  - Exercise lack of [Recovered/Resolved]
  - Dyspnoea exertional [Recovered/Resolved]
